FAERS Safety Report 10895954 (Version 1)
Quarter: 2015Q1

REPORT INFORMATION
  Report Type: Spontaneous
  Country: US (occurrence: US)
  Receive Date: 20150308
  Receipt Date: 20150308
  Transmission Date: 20150721
  Serious: No
  Sender: FDA-Public Use
  Company Number: US-ASTRAZENECA-2015SE18409

PATIENT
  Age: 23893 Day
  Sex: Female
  Weight: 113.4 kg

DRUGS (11)
  1. LEVOXYL [Concomitant]
     Active Substance: LEVOTHYROXINE SODIUM
     Indication: THYROID DISORDER
     Route: 048
  2. MONTELEUKAST SODIUM [Concomitant]
     Indication: PULMONARY CONGESTION
     Route: 048
  3. FEBTANYL PATCH [Concomitant]
     Indication: PAIN
     Dates: start: 2012
  4. FEBTANYL PATCH [Concomitant]
     Indication: ARTHRITIS
     Dates: start: 2012
  5. SYMBICORT [Suspect]
     Active Substance: BUDESONIDE\FORMOTEROL FUMARATE DIHYDRATE
     Indication: PULMONARY CONGESTION
     Dosage: 160/4.5 2 PUFFS BID
     Route: 055
     Dates: start: 201502
  6. ZONISAMIDE. [Concomitant]
     Active Substance: ZONISAMIDE
     Indication: MIGRAINE
     Route: 048
     Dates: start: 2010
  7. BUPROPION XL [Concomitant]
     Active Substance: BUPROPION
     Indication: DEPRESSION
     Route: 048
  8. EFFEXOR XR [Concomitant]
     Active Substance: VENLAFAXINE HYDROCHLORIDE
     Indication: DEPRESSION
     Route: 048
  9. LASIX [Concomitant]
     Active Substance: FUROSEMIDE
     Indication: JOINT SWELLING
     Route: 048
     Dates: start: 2013
  10. TRAZODONE [Concomitant]
     Active Substance: TRAZODONE HYDROCHLORIDE
     Indication: SLEEP DISORDER
     Route: 048
     Dates: start: 2010
  11. FEBTANYL PATCH [Concomitant]
     Indication: FIBROMYALGIA
     Dates: start: 2012

REACTIONS (3)
  - Headache [Unknown]
  - Migraine [Unknown]
  - Product use issue [Unknown]

NARRATIVE: CASE EVENT DATE: 20150219
